FAERS Safety Report 14110020 (Version 1)
Quarter: 2017Q4

REPORT INFORMATION
  Report Type: Spontaneous
  Country: US (occurrence: US)
  Receive Date: 20171020
  Receipt Date: 20171020
  Transmission Date: 20180321
  Serious: No
  Sender: FDA-Public Use
  Company Number: US-TEVA-759727USA

PATIENT
  Age: 31 Year
  Sex: Female

DRUGS (1)
  1. SPRINTEC [Suspect]
     Active Substance: ETHINYL ESTRADIOL\NORGESTIMATE
     Indication: CONTRACEPTION
     Dosage: 0.18/0.25; 0.215/0.035; 0.250/
     Route: 065
     Dates: start: 20170317

REACTIONS (5)
  - Dysmenorrhoea [Not Recovered/Not Resolved]
  - Abdominal discomfort [Unknown]
  - Vaginal haemorrhage [Unknown]
  - Menorrhagia [Unknown]
  - Inappropriate schedule of drug administration [Unknown]

NARRATIVE: CASE EVENT DATE: 201704
